FAERS Safety Report 9335186 (Version 1)
Quarter: 2013Q2

REPORT INFORMATION
  Report Type: Report from Study
  Country: KR (occurrence: KR)
  Receive Date: 20130606
  Receipt Date: 20130606
  Transmission Date: 20140414
  Serious: Yes (Hospitalization)
  Sender: FDA-Public Use
  Company Number: KR-AMGEN-KORCT2013039870

PATIENT
  Age: 50 Year
  Sex: Male
  Weight: 48 kg

DRUGS (4)
  1. DARBEPOETIN ALFA [Suspect]
     Indication: MYELODYSPLASTIC SYNDROME
     Dosage: 240 MUG, QWK
     Route: 058
     Dates: start: 20120521, end: 20120521
  2. PREDNISOLONE [Concomitant]
     Indication: ACUTE FEBRILE NEUTROPHILIC DERMATOSIS
     Dosage: UNK
     Route: 048
     Dates: start: 20120507
  3. FOLIC ACID [Concomitant]
     Indication: VITAMIN B COMPLEX DEFICIENCY
     Dosage: UNK
     Route: 048
     Dates: start: 20120224
  4. QUETIAPINE [Concomitant]
     Indication: PROPHYLAXIS
     Dosage: 25 MG, UNK

REACTIONS (1)
  - Abulia [Recovered/Resolved]
